FAERS Safety Report 17172287 (Version 1)
Quarter: 2019Q4

REPORT INFORMATION
  Report Type: Spontaneous
  Country: IT (occurrence: IT)
  Receive Date: 20191219
  Receipt Date: 20191219
  Transmission Date: 20200122
  Serious: Yes (Other)
  Sender: FDA-Public Use
  Company Number: IT-PFIZER INC-2019543121

PATIENT
  Age: 47 Year
  Sex: Female

DRUGS (4)
  1. LITHIUM. [Suspect]
     Active Substance: LITHIUM
     Dosage: 300 MG, UNK
     Route: 048
  2. RISPERDAL [Suspect]
     Active Substance: RISPERIDONE
     Dosage: 1 MG, UNK
     Route: 048
  3. TAVOR (LORAZEPAM) [Suspect]
     Active Substance: LORAZEPAM
     Dosage: 2.5 MG, UNK
     Route: 048
  4. EN [Suspect]
     Active Substance: DELORAZEPAM
     Dosage: 2 MG, UNK
     Route: 048

REACTIONS (4)
  - Intentional self-injury [Unknown]
  - Sluggishness [Unknown]
  - Intentional product misuse [Unknown]
  - Tachycardia [Unknown]

NARRATIVE: CASE EVENT DATE: 20191125
